FAERS Safety Report 15792823 (Version 2)
Quarter: 2019Q1

REPORT INFORMATION
  Report Type: Spontaneous
  Country: US (occurrence: US)
  Receive Date: 20190107
  Receipt Date: 20190108
  Transmission Date: 20190417
  Serious: Yes (Hospitalization)
  Sender: FDA-Public Use
  Company Number: US-JNJFOC-20181236455

PATIENT
  Sex: Male

DRUGS (4)
  1. TYLENOL [Suspect]
     Active Substance: ACETAMINOPHEN
     Route: 065
  2. MOTRIN [Suspect]
     Active Substance: IBUPROFEN
     Route: 065
  3. MOTRIN [Suspect]
     Active Substance: IBUPROFEN
     Indication: PYREXIA
     Dosage: FREQUENCY: EVER 4.5 HOURS,  FOR SIX DAYS
     Route: 065
  4. TYLENOL [Suspect]
     Active Substance: ACETAMINOPHEN
     Indication: PYREXIA
     Dosage: FREQUENCY: EVER 4.5 HOURS,  FOR SIX DAYS
     Route: 065

REACTIONS (4)
  - Malaise [Unknown]
  - Hypersomnia [Unknown]
  - Inappropriate schedule of product administration [Unknown]
  - Feeling cold [Unknown]
